FAERS Safety Report 8355381-3 (Version None)
Quarter: 2012Q2

REPORT INFORMATION
  Report Type: 
  Country: None (occurrence: None)
  Receive Date: 20120511
  Receipt Date: 20120504
  Transmission Date: 20120825
  Serious: Yes (Life-Threatening, Hospitalization, Other)
  Sender: FDA-Public Use
  Company Number: US-ROCHE-1029728

PATIENT
  Sex: Male
  Weight: 98.972 kg

DRUGS (24)
  1. ASPIRIN [Concomitant]
  2. HYDRALAZINE HCL [Concomitant]
  3. NASACORT [Concomitant]
  4. PREVISCAN [Concomitant]
  5. SINGULAIR [Concomitant]
  6. FLOVENT [Concomitant]
  7. XOPENEX [Concomitant]
  8. GLUCOPHAGE [Concomitant]
  9. CLARITIN [Concomitant]
  10. PRILOSEC [Concomitant]
  11. XOLAIR [Suspect]
     Indication: ASTHMA
     Route: 058
     Dates: start: 20070621
  12. JANUVIA [Concomitant]
  13. LISINOPRIL [Concomitant]
  14. INSPRA [Concomitant]
  15. NIASPAN [Concomitant]
  16. MULTI-VITAMINS [Concomitant]
  17. ADVAIR DISKUS 100/50 [Concomitant]
  18. PATANOL [Concomitant]
  19. COREG [Concomitant]
  20. POTASSIUM CHLORIDE [Concomitant]
  21. LIPITOR [Concomitant]
  22. CITALOPRAM [Concomitant]
  23. FISH OIL [Concomitant]
  24. DEMADEX [Concomitant]

REACTIONS (1)
  - MYOCARDIAL INFARCTION [None]
